FAERS Safety Report 17025403 (Version 1)
Quarter: 2019Q4

REPORT INFORMATION
  Report Type: Spontaneous
  Country: AU (occurrence: AU)
  Receive Date: 20191113
  Receipt Date: 20191113
  Transmission Date: 20200122
  Serious: Yes (Hospitalization)
  Sender: FDA-Public Use
  Company Number: AU-MYLANLABS-2019M1109807

PATIENT
  Age: 53 Year
  Sex: Male

DRUGS (2)
  1. INDOMETACIN [Suspect]
     Active Substance: INDOMETHACIN
     Indication: SELF-MEDICATION
     Route: 065
     Dates: start: 2013
  2. INDOMETACIN [Suspect]
     Active Substance: INDOMETHACIN
     Indication: GOUT

REACTIONS (5)
  - Arthritis gonococcal [Unknown]
  - Paraspinal abscess [Unknown]
  - Condition aggravated [Unknown]
  - Gouty arthritis [Unknown]
  - Tenosynovitis [Unknown]

NARRATIVE: CASE EVENT DATE: 2013
